FAERS Safety Report 10258089 (Version 5)
Quarter: 2014Q4

REPORT INFORMATION
  Report Type: Report from Study
  Country: JP (occurrence: JP)
  Receive Date: 20140625
  Receipt Date: 20141010
  Transmission Date: 20150528
  Serious: Yes (Hospitalization)
  Sender: FDA-Public Use
  Company Number: JP-BAYER-2014-091482

PATIENT
  Age: 61 Year
  Sex: Male
  Weight: 55 kg

DRUGS (16)
  1. LASIX [Concomitant]
     Active Substance: FUROSEMIDE
     Indication: PROPHYLAXIS
     Dosage: 40 MG, QD
     Route: 048
     Dates: start: 20131108
  2. LOXONIN [Concomitant]
     Active Substance: LOXOPROFEN SODIUM
     Indication: BACK PAIN
     Dosage: 100 MG, UNK
     Route: 062
     Dates: start: 20130726
  3. FLOMOX [Concomitant]
     Active Substance: CEFCAPENE PIVOXIL HYDROCHLORIDE HYDRATE
     Indication: INFECTION PROPHYLAXIS
     Dosage: 100 MG, TID
     Route: 048
     Dates: start: 20140613
  4. LOXONIN [Concomitant]
     Active Substance: LOXOPROFEN SODIUM
     Indication: BACK PAIN
     Dosage: 100 MG, QD
     Route: 062
     Dates: start: 20140912
  5. LIVACT [Concomitant]
     Active Substance: AMINO ACIDS
     Indication: HEPATIC CIRRHOSIS
     Dosage: 4.15 G, TID
     Route: 048
     Dates: start: 20140512
  6. KERATINAMIN [Concomitant]
     Active Substance: UREA
     Indication: DRUG TOXICITY PROPHYLAXIS
     Dosage: UNK
     Route: 061
     Dates: start: 20140530
  7. BETAMETHASONE BUTYRATE PROPIONATE [Concomitant]
     Active Substance: BETAMETHASONE BUTYRATE PROPIONATE
     Indication: PALMAR-PLANTAR ERYTHRODYSAESTHESIA SYNDROME
  8. NAIXAN [Concomitant]
     Active Substance: NAPROXEN SODIUM
     Indication: PYREXIA
     Dosage: 200 MG, BID
     Route: 048
     Dates: start: 20140905
  9. FERROUS SODIUM CITRATE [Concomitant]
     Indication: ANAEMIA
     Dosage: 50 MG, BID
     Route: 048
     Dates: start: 20140822
  10. BARACLUDE [Concomitant]
     Active Substance: ENTECAVIR
     Indication: HEPATITIS B
     Dosage: 0.5 MG, QD
     Route: 048
     Dates: start: 2011
  11. NEXIUM [Concomitant]
     Active Substance: ESOMEPRAZOLE MAGNESIUM
     Indication: PROPHYLAXIS
     Dosage: 20 MG, QD
     Route: 048
     Dates: start: 20130201
  12. ALDACTONE [Concomitant]
     Active Substance: SPIRONOLACTONE
     Indication: PROPHYLAXIS
     Dosage: 25 MG, QD
     Route: 048
     Dates: start: 20131108
  13. REGORAFENIB [Suspect]
     Active Substance: REGORAFENIB
     Indication: HEPATOCELLULAR CARCINOMA
     Dosage: 160 MG, QD (ON FOR 3 WEEKS AND OFF FOR 1 WEEK, EACH CYCLE)
     Route: 048
     Dates: start: 20140530, end: 20140612
  14. REGORAFENIB [Suspect]
     Active Substance: REGORAFENIB
     Indication: HEPATOCELLULAR CARCINOMA
     Dosage: 80 MG, QD (ON FOR 3 WEEKS AND OFF FOR 1 WEEK, EACH CYCLE)
     Route: 048
     Dates: start: 20140627, end: 20140919
  15. LOXONIN [Concomitant]
     Active Substance: LOXOPROFEN SODIUM
     Indication: BACK PAIN
     Dosage: 60 MG, PRN
     Route: 048
     Dates: start: 20140808
  16. COCARL [Concomitant]
     Active Substance: ACETAMINOPHEN
     Indication: PYREXIA
     Dosage: 400 MG, TID
     Route: 048
     Dates: start: 20140613

REACTIONS (2)
  - Hepatic encephalopathy [Recovered/Resolved]
  - Hepatic encephalopathy [Recovered/Resolved]

NARRATIVE: CASE EVENT DATE: 20140614
